FAERS Safety Report 9220204 (Version 1)
Quarter: 2013Q2

REPORT INFORMATION
  Report Type: Spontaneous
  Country: FR (occurrence: FR)
  Receive Date: 20130409
  Receipt Date: 20130409
  Transmission Date: 20140414
  Serious: Yes (Other)
  Sender: FDA-Public Use
  Company Number: FR-ROCHE-1211713

PATIENT
  Age: 79 Year
  Sex: Female

DRUGS (5)
  1. MABTHERA [Suspect]
     Indication: AUTOIMMUNE THROMBOCYTOPENIA
     Route: 065
     Dates: start: 20111210
  2. MABTHERA [Suspect]
     Route: 042
     Dates: start: 20120210, end: 201203
  3. POLARAMINE [Concomitant]
     Route: 042
     Dates: start: 20120210
  4. PYOSTACINE [Concomitant]
     Route: 003
     Dates: start: 201202
  5. METHYLPREDNISOLONE [Concomitant]

REACTIONS (1)
  - Psoriasis [Recovered/Resolved]
